FAERS Safety Report 7834087-0 (Version None)
Quarter: 2011Q4

REPORT INFORMATION
  Report Type: 
  Country: None (occurrence: None)
  Receive Date: 20111024
  Receipt Date: 20111024
  Transmission Date: 20120403
  Serious: Yes (Life-Threatening, Hospitalization, Other)
  Sender: FDA-Public Use
  Company Number: None

PATIENT
  Sex: Female
  Weight: 108.86 kg

DRUGS (2)
  1. SEROQUEL [Concomitant]
     Indication: BIPOLAR DISORDER
     Dosage: 600 MG?
     Route: 042
     Dates: start: 20111011, end: 20111023
  2. LITHIUM CITRATE [Suspect]
     Indication: BIPOLAR DISORDER
     Dosage: 600 MG?
     Route: 042
     Dates: start: 20110807, end: 20111011

REACTIONS (13)
  - PARALYSIS [None]
  - DIZZINESS [None]
  - ILEUS [None]
  - NAUSEA [None]
  - ABDOMINAL PAIN UPPER [None]
  - DISTURBANCE IN ATTENTION [None]
  - CONSTIPATION [None]
  - RENAL INJURY [None]
  - BOWEL MOVEMENT IRREGULARITY [None]
  - ABASIA [None]
  - LIVER INJURY [None]
  - OEDEMA PERIPHERAL [None]
  - ASTHENIA [None]
